FAERS Safety Report 4700219-6 (Version None)
Quarter: 2005Q2

REPORT INFORMATION
  Report Type: 
  Country: None (occurrence: None)
  Receive Date: 20050623
  Receipt Date: 20050608
  Transmission Date: 20051028
  Serious: Yes (Death)
  Sender: FDA-Public Use
  Company Number: 2005-DE-02141GD

PATIENT
  Sex: Male

DRUGS (2)
  1. BUDESONIDE [Suspect]
     Indication: RESPIRATORY FAILURE
     Dosage: IH
     Route: 055
  2. DEXAMETHASONE [Suspect]
     Indication: RESPIRATORY FAILURE

REACTIONS (1)
  - PNEUMONIA ADENOVIRAL [None]
